FAERS Safety Report 22133129 (Version 1)
Quarter: 2023Q1

REPORT INFORMATION
  Report Type: Spontaneous
  Country: US (occurrence: US)
  Receive Date: 20230324
  Receipt Date: 20230324
  Transmission Date: 20230418
  Serious: Yes (Other)
  Sender: FDA-Public Use
  Company Number: US-AUROBINDO-AUR-APL-2023-012579

PATIENT
  Age: 80 Year
  Sex: Male

DRUGS (15)
  1. AZITHROMYCIN [Suspect]
     Active Substance: AZITHROMYCIN
     Indication: Babesiosis
     Dosage: 500 MILLIGRAM, DAILY
     Route: 065
  2. AZITHROMYCIN [Suspect]
     Active Substance: AZITHROMYCIN
     Dosage: 1000 MILLIGRAM, DAILY
     Route: 065
  3. CLINDAMYCIN [Suspect]
     Active Substance: CLINDAMYCIN
     Indication: Babesiosis
     Dosage: 600 MILLIGRAM, 3 TIMES A DAY
     Route: 065
  4. CLINDAMYCIN [Suspect]
     Active Substance: CLINDAMYCIN
     Dosage: 300 MILLIGRAM, 3 TIMES A DAY
     Route: 065
  5. ATOVAQUONE [Suspect]
     Active Substance: ATOVAQUONE
     Indication: Babesiosis
     Dosage: 750 MILLIGRAM, TWO TIMES A DAY
     Route: 065
  6. ATOVAQUONE [Suspect]
     Active Substance: ATOVAQUONE
     Dosage: 1250 MILLIGRAM, DAILY
     Route: 065
  7. Immunoglobulin [Concomitant]
     Indication: Cold type haemolytic anaemia
     Dosage: UNK
     Route: 042
  8. RITUXIMAB [Concomitant]
     Active Substance: RITUXIMAB
     Indication: Monoclonal B-cell lymphocytosis
     Dosage: UNK
     Route: 065
  9. BENDAMUSTINE [Concomitant]
     Active Substance: BENDAMUSTINE
     Indication: Monoclonal B-cell lymphocytosis
     Dosage: UNK
     Route: 065
  10. QUININE [Concomitant]
     Active Substance: QUININE
     Indication: Babesiosis
     Dosage: 648 MILLIGRAM, 3 TIMES A DAY
     Route: 065
  11. ATOVAQUONE;PROGUANIL [Concomitant]
     Indication: Babesiosis
     Dosage: UNK (1000/400MG DAILY)
     Route: 065
  12. ATOVAQUONE;PROGUANIL [Concomitant]
     Dosage: UNK (500/200MG DAILY)
     Route: 065
  13. TAFENOQUINE [Concomitant]
     Active Substance: TAFENOQUINE
     Indication: Babesiosis
     Dosage: 300 MILLIGRAM
     Route: 065
  14. TAFENOQUINE [Concomitant]
     Active Substance: TAFENOQUINE
     Dosage: 150 MILLIGRAM
     Route: 065
  15. TAFENOQUINE [Concomitant]
     Active Substance: TAFENOQUINE
     Dosage: 300 MILLIGRAM, EVERY WEEK
     Route: 065

REACTIONS (1)
  - Drug resistance [Unknown]
